FAERS Safety Report 25028965 (Version 1)
Quarter: 2025Q1

REPORT INFORMATION
  Report Type: Spontaneous
  Country: JP (occurrence: JP)
  Receive Date: 20250302
  Receipt Date: 20250302
  Transmission Date: 20250409
  Serious: Yes (Other)
  Sender: ASTELLAS
  Company Number: JP-ASTELLAS-2025-AER-010741

PATIENT
  Age: 73 Year
  Sex: Female

DRUGS (4)
  1. XOSPATA [Suspect]
     Active Substance: GILTERITINIB
     Indication: Acute myeloid leukaemia
     Route: 065
  2. DAUNORUBICIN [Concomitant]
     Active Substance: DAUNORUBICIN
     Indication: Product used for unknown indication
     Route: 065
  3. CYTARABINE [Concomitant]
     Active Substance: CYTARABINE
     Indication: Product used for unknown indication
     Route: 065
  4. QUIZARTINIB [Concomitant]
     Active Substance: QUIZARTINIB
     Indication: Acute myeloid leukaemia
     Route: 065

REACTIONS (6)
  - Pulmonary toxicity [Unknown]
  - Lung opacity [Unknown]
  - Pulmonary alveolar haemorrhage [Unknown]
  - Cardiac failure [Unknown]
  - Pneumonia [Unknown]
  - Rash [Unknown]
